FAERS Safety Report 5515205-6 (Version None)
Quarter: 2007Q4

REPORT INFORMATION
  Report Type: 
  Country: None (occurrence: None)
  Receive Date: 20071113
  Receipt Date: 20071106
  Transmission Date: 20080405
  Serious: Yes (Life-Threatening, Hospitalization)
  Sender: FDA-Public Use
  Company Number: US-ABBOTT-07P-163-0423645-00

PATIENT
  Age: 81 Year
  Sex: Female

DRUGS (5)
  1. WARFARIN SODIUM [Suspect]
     Indication: ANTICOAGULANT THERAPY
     Dosage: 4 TO 4.5 MG DAILY
  2. WARFARIN SODIUM [Suspect]
     Dosage: DOSE TITRATED TO TARGET INR
  3. ACETAMINOPHEN [Interacting]
     Indication: PYREXIA
  4. ACETAMINOPHEN [Interacting]
  5. LABETALOL HCL [Concomitant]
     Indication: HYPERTENSION
     Dosage: NOT REPORTED

REACTIONS (3)
  - DRUG INTERACTION [None]
  - GASTROINTESTINAL HAEMORRHAGE [None]
  - INTERNATIONAL NORMALISED RATIO INCREASED [None]
